FAERS Safety Report 24368919 (Version 1)
Quarter: 2024Q3

REPORT INFORMATION
  Report Type: Report from Study
  Country: TW (occurrence: TW)
  Receive Date: 20240927
  Receipt Date: 20240927
  Transmission Date: 20241016
  Serious: Yes (Hospitalization)
  Sender: ABBVIE
  Company Number: TW-ABBVIE-5938225

PATIENT
  Age: 46 Year
  Sex: Female
  Weight: 82 kg

DRUGS (3)
  1. RINVOQ [Suspect]
     Active Substance: UPADACITINIB
     Indication: Rheumatoid arthritis
     Route: 048
     Dates: start: 20231206
  2. PLAQUENIL [Concomitant]
     Active Substance: HYDROXYCHLOROQUINE SULFATE
     Indication: Rheumatoid arthritis
     Dosage: 200MG?FREQUENCY TEXT: QD
     Route: 048
     Dates: start: 20230421
  3. SILYGEN [Concomitant]
     Indication: Chronic hepatitis
     Dosage: TIME INTERVAL: 0.33333333 DAYS: 100 MQ?FREQUENCY TEXT: TID
     Route: 048
     Dates: start: 20240322

REACTIONS (4)
  - Liver function test abnormal [Not Recovered/Not Resolved]
  - Arthralgia [Unknown]
  - Chronic hepatitis [Unknown]
  - Discomfort [Unknown]

NARRATIVE: CASE EVENT DATE: 20240920
